FAERS Safety Report 15826475 (Version 2)
Quarter: 2019Q1

REPORT INFORMATION
  Report Type: Spontaneous
  Country: US (occurrence: US)
  Receive Date: 20190115
  Receipt Date: 20190213
  Transmission Date: 20190417
  Serious: No
  Sender: FDA-Public Use
  Company Number: PHHY2019US003806

PATIENT
  Sex: Female

DRUGS (1)
  1. ICAPS AREDS [Suspect]
     Active Substance: MINERALS\VITAMINS
     Indication: PRODUCT USED FOR UNKNOWN INDICATION
     Route: 048

REACTIONS (2)
  - Product shape issue [Unknown]
  - Foreign body in respiratory tract [Unknown]

NARRATIVE: CASE EVENT DATE: 20190108
